FAERS Safety Report 18179016 (Version 1)
Quarter: 2020Q3

REPORT INFORMATION
  Report Type: Report from Study
  Country: CA (occurrence: CA)
  Receive Date: 20200820
  Receipt Date: 20200820
  Transmission Date: 20201103
  Serious: Yes (Death)
  Sender: FDA-Public Use
  Company Number: CA-HLS-202001060

PATIENT
  Age: 31 Year
  Sex: Female

DRUGS (1)
  1. CLOZARIL [Suspect]
     Active Substance: CLOZAPINE
     Route: 048
     Dates: start: 20120801, end: 20200710

REACTIONS (1)
  - Death [Fatal]

NARRATIVE: CASE EVENT DATE: 20200710
